FAERS Safety Report 6766308-X (Version None)
Quarter: 2010Q2

REPORT INFORMATION
  Report Type: 
  Country: None (occurrence: None)
  Receive Date: 20100611
  Receipt Date: 20100531
  Transmission Date: 20101027
  Serious: Yes (Hospitalization)
  Sender: FDA-Public Use
  Company Number: TW-GENZYME-POMP-1000851

PATIENT
  Age: 24 Day
  Sex: Female
  Weight: 3.35 kg

DRUGS (1)
  1. MYOZYME [Suspect]
     Indication: GLYCOGEN STORAGE DISEASE TYPE II
     Dosage: 100 MG, UNK
     Route: 042
     Dates: start: 20100201

REACTIONS (4)
  - HYPERSENSITIVITY [None]
  - ORAL CANDIDIASIS [None]
  - PYREXIA [None]
  - TACHYCARDIA [None]
